FAERS Safety Report 8503762-7 (Version None)
Quarter: 2012Q3

REPORT INFORMATION
  Report Type: 
  Country: None (occurrence: None)
  Receive Date: 20120711
  Receipt Date: 20120704
  Transmission Date: 20120928
  Serious: Yes (Hospitalization)
  Sender: FDA-Public Use
  Company Number: JP-ABBOTT-11P-087-0709749-00

PATIENT
  Age: 81 Year
  Sex: Male
  Weight: 62.9 kg

DRUGS (8)
  1. ALLOPURINOL [Concomitant]
     Route: 048
  2. LEUPROLIDE ACETATE [Suspect]
     Indication: PROSTATE CANCER
     Route: 058
     Dates: start: 20081007, end: 20100401
  3. ALLOPURINOL [Concomitant]
     Indication: HYPERURICAEMIA
     Route: 048
     Dates: end: 20100531
  4. AMLODIPINE [Concomitant]
     Indication: HYPERTENSION
     Route: 048
     Dates: end: 20100531
  5. AMLODIPINE [Concomitant]
     Route: 048
  6. LIPITOR [Concomitant]
     Indication: HYPERLIPIDAEMIA
     Dates: end: 20100531
  7. LIPITOR [Concomitant]
     Route: 048
  8. LIPITOR [Concomitant]
     Route: 048

REACTIONS (3)
  - DYSPNOEA EXERTIONAL [None]
  - LUNG DISORDER [None]
  - MALAISE [None]
